FAERS Safety Report 22010748 (Version 1)
Quarter: 2023Q1

REPORT INFORMATION
  Report Type: Spontaneous
  Country: BE (occurrence: BE)
  Receive Date: 20230220
  Receipt Date: 20230220
  Transmission Date: 20230417
  Serious: Yes (Other)
  Sender: FDA-Public Use
  Company Number: BE-ORGANON-O2301BEL001632

PATIENT
  Age: 43 Year
  Sex: Female

DRUGS (1)
  1. ETONOGESTREL [Suspect]
     Active Substance: ETONOGESTREL
     Dosage: 1 IMPLANT ON LEFT UPPER ARM
     Route: 059
     Dates: start: 20221206, end: 20230114

REACTIONS (3)
  - Device expulsion [Recovered/Resolved]
  - Complication of device insertion [Not Recovered/Not Resolved]
  - Impaired healing [Unknown]

NARRATIVE: CASE EVENT DATE: 20221206
